FAERS Safety Report 12522427 (Version 3)
Quarter: 2016Q4

REPORT INFORMATION
  Report Type: Spontaneous
  Country: IT (occurrence: IT)
  Receive Date: 20160701
  Receipt Date: 20161010
  Transmission Date: 20170207
  Serious: Yes (Hospitalization)
  Sender: FDA-Public Use
  Company Number: IT-MYLANLABS-2016M1027303

PATIENT

DRUGS (1)
  1. SERTRALINE [Suspect]
     Active Substance: SERTRALINE HYDROCHLORIDE
     Indication: SCHOOL REFUSAL
     Dosage: 50 MG, QD
     Dates: start: 20160101, end: 20160602

REACTIONS (1)
  - Benign intracranial hypertension [Recovering/Resolving]

NARRATIVE: CASE EVENT DATE: 20160101
